FAERS Safety Report 10862211 (Version 1)
Quarter: 2015Q1

REPORT INFORMATION
  Report Type: Spontaneous
  Country: US (occurrence: None)
  Receive Date: 20150219
  Receipt Date: 20150219
  Transmission Date: 20150721
  Serious: Yes (Hospitalization)
  Sender: FDA-Public Use
  Company Number: None

PATIENT
  Sex: Male
  Weight: 71 kg

DRUGS (14)
  1. MYCOPHEPENOLATE [Concomitant]
  2. ALPRAZOLAM. [Concomitant]
     Active Substance: ALPRAZOLAM
  3. MEGESTROL [Concomitant]
     Active Substance: MEGESTROL
  4. RIBAVIRIN. [Suspect]
     Active Substance: RIBAVIRIN
     Indication: HEPATITIS C
     Route: 048
     Dates: start: 20140926
  5. TRAZODONE [Concomitant]
     Active Substance: TRAZODONE HYDROCHLORIDE
  6. LEVETIRACETAM. [Concomitant]
     Active Substance: LEVETIRACETAM
  7. PROGRAF [Concomitant]
     Active Substance: TACROLIMUS\TACROLIMUS ANHYDROUS
  8. NEURONTIN [Concomitant]
     Active Substance: GABAPENTIN
  9. XIFAXAN [Concomitant]
     Active Substance: RIFAXIMIN
  10. SOVALDI [Suspect]
     Active Substance: SOFOSBUVIR
     Indication: HEPATITIS C
     Route: 048
     Dates: start: 20140926
  11. CALCIUM ACETATE. [Concomitant]
     Active Substance: CALCIUM ACETATE
  12. MYFORTIC [Concomitant]
     Active Substance: MYCOPHENOLATE SODIUM
  13. WARFIN SODIUM [Concomitant]
  14. AMLODIPINE BESYLATE. [Concomitant]
     Active Substance: AMLODIPINE BESYLATE

REACTIONS (1)
  - Anaemia [None]

NARRATIVE: CASE EVENT DATE: 20150115
